FAERS Safety Report 9980776 (Version 3)
Quarter: 2014Q1

REPORT INFORMATION
  Report Type: Spontaneous
  Country: TR (occurrence: TR)
  Receive Date: 20140307
  Receipt Date: 20140321
  Transmission Date: 20141002
  Serious: Yes (Other)
  Sender: FDA-Public Use
  Company Number: TR-AMGEN-TURSP2012020163

PATIENT
  Age: 45 Year
  Sex: Female

DRUGS (4)
  1. ENBREL [Suspect]
     Indication: PSORIATIC ARTHROPATHY
     Dosage: 50 MG, MONTHLY
     Route: 058
     Dates: start: 2009, end: 201112
  2. ENBREL [Suspect]
     Dosage: 50 MG, ONCE IN EVERY 15-20 DAYS
     Route: 058
     Dates: start: 201112
  3. ENBREL [Suspect]
     Dosage: 50 MG, MONTHLY
     Route: 058
  4. ENBREL [Suspect]
     Dosage: 50 MG, UNK
     Route: 058
     Dates: start: 20121201, end: 20140123

REACTIONS (11)
  - Endometrial hyperplasia [Unknown]
  - Erythema [Recovered/Resolved]
  - Joint swelling [Not Recovered/Not Resolved]
  - Local swelling [Not Recovered/Not Resolved]
  - Off label use [Unknown]
  - Pharyngeal erythema [Not Recovered/Not Resolved]
  - Pain [Not Recovered/Not Resolved]
  - Injection site erythema [Not Recovered/Not Resolved]
  - Injection site pruritus [Not Recovered/Not Resolved]
  - Injection site pain [Not Recovered/Not Resolved]
  - Injection site swelling [Not Recovered/Not Resolved]
